FAERS Safety Report 13913047 (Version 4)
Quarter: 2024Q1

REPORT INFORMATION
  Report Type: Spontaneous
  Country: US (occurrence: US)
  Receive Date: 20170828
  Receipt Date: 20240226
  Transmission Date: 20240410
  Serious: Yes (Hospitalization, Other)
  Sender: FDA-Public Use
  Company Number: US-PRINSTON PHARMACEUTICAL INC.-2017PRN00361

PATIENT
  Sex: Female
  Weight: 92.971 kg

DRUGS (12)
  1. PAROXETINE [Suspect]
     Active Substance: PAROXETINE
     Indication: Post-traumatic stress disorder
     Dosage: 10 MG, 1X/DAY
     Route: 048
     Dates: start: 201610
  2. PAROXETINE [Suspect]
     Active Substance: PAROXETINE
     Indication: Anxiety
     Dosage: 20 MG, 1X/DAY
     Route: 048
     Dates: end: 20170509
  3. PAROXETINE [Suspect]
     Active Substance: PAROXETINE
     Indication: Sleep disorder
  4. PAROXETINE [Suspect]
     Active Substance: PAROXETINE
     Indication: Depression
  5. PAROXETINE [Suspect]
     Active Substance: PAROXETINE
     Indication: Stress
  6. PAXIL [Suspect]
     Active Substance: PAROXETINE HYDROCHLORIDE
     Indication: Anxiety
     Dosage: 20 MG, 1X/DAY
     Route: 048
     Dates: start: 20170509
  7. PAXIL [Suspect]
     Active Substance: PAROXETINE HYDROCHLORIDE
     Indication: Sleep disorder
  8. PAXIL [Suspect]
     Active Substance: PAROXETINE HYDROCHLORIDE
     Indication: Depression
  9. PAXIL [Suspect]
     Active Substance: PAROXETINE HYDROCHLORIDE
     Indication: Stress
  10. CALTRATE [Concomitant]
     Active Substance: CALCIUM CARBONATE
  11. PANTOPRAZOLE [Concomitant]
     Active Substance: PANTOPRAZOLE
     Dosage: 80 MG, 1X/DAY
  12. MINERALS\VITAMINS [Concomitant]
     Active Substance: MINERALS\VITAMINS

REACTIONS (20)
  - Hiatus hernia [Recovered/Resolved]
  - Barrett^s oesophagus [Unknown]
  - Internal haemorrhage [Recovered/Resolved]
  - Dyspnoea [Recovered/Resolved]
  - Haematemesis [Recovered/Resolved]
  - Microcytic anaemia [Unknown]
  - Pulse abnormal [Recovered/Resolved]
  - Vital functions abnormal [Recovered/Resolved]
  - Fatigue [Recovered/Resolved]
  - Stress [Recovered/Resolved]
  - Renal cyst [Unknown]
  - Vein disorder [Unknown]
  - Food poisoning [Recovering/Resolving]
  - Decreased appetite [Recovered/Resolved]
  - Weight decreased [Recovered/Resolved]
  - Poor quality sleep [Recovered/Resolved]
  - Asthenia [Recovered/Resolved]
  - Peripheral swelling [Unknown]
  - Herpes zoster [Unknown]
  - Drug ineffective [Recovered/Resolved]

NARRATIVE: CASE EVENT DATE: 20160101
